FAERS Safety Report 14599404 (Version 1)
Quarter: 2018Q1

REPORT INFORMATION
  Report Type: Report from Study
  Country: GB (occurrence: GB)
  Receive Date: 20180305
  Receipt Date: 20180305
  Transmission Date: 20180509
  Serious: Yes (Other)
  Sender: FDA-Public Use
  Company Number: GB-JNJFOC-20151114471

PATIENT
  Age: 60 Year
  Sex: Male
  Weight: 85 kg

DRUGS (5)
  1. LOSARTAN. [Concomitant]
     Active Substance: LOSARTAN
     Route: 048
  2. FELODIPINE. [Concomitant]
     Active Substance: FELODIPINE
     Route: 048
  3. RIVAROXABAN [Suspect]
     Active Substance: RIVAROXABAN
     Indication: THROMBOSIS PROPHYLAXIS
     Route: 048
     Dates: start: 20150728, end: 20151110
  4. RIVAROXABAN [Suspect]
     Active Substance: RIVAROXABAN
     Indication: EMBOLIC STROKE
     Route: 048
     Dates: start: 20150728, end: 20151110
  5. RIVAROXABAN [Suspect]
     Active Substance: RIVAROXABAN
     Indication: CEREBROVASCULAR ACCIDENT PROPHYLAXIS
     Route: 048
     Dates: start: 20150728, end: 20151110

REACTIONS (1)
  - Anaemia [Recovered/Resolved]

NARRATIVE: CASE EVENT DATE: 20151110
